FAERS Safety Report 6581289-X (Version None)
Quarter: 2010Q1

REPORT INFORMATION
  Report Type: 
  Country: None (occurrence: None)
  Receive Date: 20100215
  Receipt Date: 20100209
  Transmission Date: 20100710
  Serious: Yes (Death)
  Sender: FDA-Public Use
  Company Number: US-GILEAD-2010-0026768

PATIENT
  Sex: Female
  Weight: 56.296 kg

DRUGS (15)
  1. LETAIRIS [Suspect]
     Indication: PULMONARY ARTERIAL HYPERTENSION
     Route: 048
     Dates: start: 20090706, end: 20100111
  2. WARFARIN [Concomitant]
  3. FUROSEMIDE [Concomitant]
  4. BENICAR [Concomitant]
  5. METOPROLOL TARTRATE [Concomitant]
  6. OXYGEN [Concomitant]
  7. LORAZEPAM [Concomitant]
  8. TYLENOL-500 [Concomitant]
  9. PREMARIN [Concomitant]
  10. FEXOFENADINE [Concomitant]
  11. VITAMIN B-12 [Concomitant]
  12. ACTONEL [Concomitant]
  13. LEVOXYL [Concomitant]
  14. VITAMIN D3 [Concomitant]
  15. IMODIUM [Concomitant]

REACTIONS (2)
  - INTESTINAL PERFORATION [None]
  - OEDEMA PERIPHERAL [None]
